FAERS Safety Report 11168172 (Version 1)
Quarter: 2015Q2

REPORT INFORMATION
  Report Type: Report from Study
  Country: BR (occurrence: BR)
  Receive Date: 20150605
  Receipt Date: 20150605
  Transmission Date: 20150821
  Serious: Yes (Hospitalization)
  Sender: FDA-Public Use
  Company Number: PHHY2015BR065478

PATIENT
  Age: 72 Year
  Sex: Male
  Weight: 74 kg

DRUGS (2)
  1. EXELON PATCH [Suspect]
     Active Substance: RIVASTIGMINE
     Indication: AMNESIA
     Dosage: 1 PATCH (5 CM2), EVERY 24 HOURS
     Route: 062
     Dates: start: 201503, end: 201504
  2. EXELON PATCH [Suspect]
     Active Substance: RIVASTIGMINE
     Indication: DISORIENTATION
     Dosage: 1 PATCH (10 CM2), EVERY 24 HOURS
     Route: 062
     Dates: start: 20150427, end: 20150501

REACTIONS (8)
  - Somnolence [Recovering/Resolving]
  - Pneumonia aspiration [Recovering/Resolving]
  - Hypertension [Recovering/Resolving]
  - Anxiety [Recovering/Resolving]
  - Increased bronchial secretion [Unknown]
  - Seizure [Recovering/Resolving]
  - Nausea [Unknown]
  - Off label use [Unknown]

NARRATIVE: CASE EVENT DATE: 20150501
